FAERS Safety Report 7904251-0 (Version None)
Quarter: 2011Q4

REPORT INFORMATION
  Report Type: 
  Country: None (occurrence: None)
  Receive Date: 20111109
  Receipt Date: 20111104
  Transmission Date: 20120403
  Serious: Yes (Hospitalization, Other)
  Sender: FDA-Public Use
  Company Number: US-PFIZER INC-2011044442

PATIENT
  Sex: Male

DRUGS (2)
  1. CHANTIX [Suspect]
     Indication: SMOKING CESSATION THERAPY
     Dosage: 0.5 MG/ 1.0 MG
     Dates: start: 20070124, end: 20070301
  2. CHANTIX [Suspect]
     Dosage: 0.5 MG/ 1.0 MG
     Dates: start: 20090202, end: 20090501

REACTIONS (6)
  - MENTAL DISORDER [None]
  - EMOTIONAL DISTRESS [None]
  - SUICIDAL IDEATION [None]
  - LOSS OF CONSCIOUSNESS [None]
  - DEPRESSION [None]
  - ANXIETY [None]
